FAERS Safety Report 6133798-5 (Version None)
Quarter: 2009Q1

REPORT INFORMATION
  Report Type: 
  Country: None (occurrence: None)
  Receive Date: 20090326
  Receipt Date: 20090313
  Transmission Date: 20090719
  Serious: Yes (Death, Hospitalization, Other)
  Sender: FDA-Public Use
  Company Number: US-PFIZER INC-2008083595

PATIENT
  Sex: Male
  Weight: 78.005 kg

DRUGS (19)
  1. IRINOTECAN HCL [Suspect]
     Indication: SMALL CELL LUNG CANCER STAGE UNSPECIFIED
     Dosage: 60 MG/M2 (115 MG), DAYS 1, 8, 15
     Route: 042
     Dates: start: 20080908, end: 20080915
  2. SU-011,248 [Suspect]
     Indication: SMALL CELL LUNG CANCER STAGE UNSPECIFIED
     Dosage: 37.5 MG, 1X/DAY
     Route: 048
     Dates: start: 20080908, end: 20081002
  3. CARBOPLATIN [Suspect]
     Indication: SMALL CELL LUNG CANCER STAGE UNSPECIFIED
     Dosage: AUC 4 (522 MG), DAY 1
     Route: 042
     Dates: start: 20080908, end: 20080908
  4. COMPAZINE [Concomitant]
     Indication: NAUSEA
     Dosage: 10 MG, Q 6 HRS, PRN
     Route: 048
     Dates: start: 20080908
  5. PAXIL [Concomitant]
     Dosage: 10 MG, 1X/DAY
     Route: 048
  6. MUCINEX [Concomitant]
     Dosage: UNK
     Route: 048
     Dates: start: 20080815
  7. KLONOPIN [Concomitant]
     Indication: ANXIETY
     Dosage: 5 MG, 1X/DAY
     Route: 048
  8. DARVOCET [Concomitant]
     Indication: PAIN
     Dosage: 100 MG, Q 6 HRS, PRN
     Route: 048
  9. PROMETHAZINE [Concomitant]
     Indication: NAUSEA
     Dosage: 25 MG, Q 4 HRS, PRN
     Route: 048
  10. METOPROLOL TARTRATE [Concomitant]
     Indication: HYPERTENSION
     Dosage: 50 MG, 1X/DAY
     Route: 048
  11. LISINOPRIL [Concomitant]
     Indication: HYPERTENSION
     Dosage: 20 MG, 1X/DAY
     Route: 048
  12. LASIX [Concomitant]
     Indication: HYPERTENSION
     Dosage: 20 MG, 1X/DAY
     Route: 048
  13. AMBIEN [Concomitant]
     Indication: INSOMNIA
     Dosage: 5MG-10MG, 1X/DAY
     Route: 048
  14. ERYTHROMYCIN [Concomitant]
     Indication: PNEUMONIA
     Dosage: 250 MG, QID
     Route: 048
     Dates: start: 20080814, end: 20080828
  15. XANAX [Concomitant]
     Indication: ANXIETY
     Dosage: 0.5 MG, Q 8 HRS, PRN
     Route: 048
     Dates: start: 20080908
  16. METRONIDAZOLE [Concomitant]
     Indication: COLITIS
     Dosage: 500 MG, 3X/DAY
     Route: 048
     Dates: start: 20080925
  17. LEVAQUIN [Concomitant]
     Indication: INFECTION
     Dosage: 500 MG, 1X/DAY
     Route: 042
     Dates: start: 20080922, end: 20080926
  18. LEVAQUIN [Concomitant]
     Dosage: UNK
  19. DEMECLOCYCLINE HCL [Concomitant]
     Indication: INAPPROPRIATE ANTIDIURETIC HORMONE SECRETION
     Dosage: 300 MG, 3X/DAY
     Route: 048
     Dates: start: 20080924, end: 20080926

REACTIONS (5)
  - CARDIAC FAILURE CONGESTIVE [None]
  - HYPONATRAEMIA [None]
  - LEUKOPENIA [None]
  - NEUTROPENIC SEPSIS [None]
  - THROMBOCYTOPENIA [None]
